FAERS Safety Report 7445381-X (Version None)
Quarter: 2011Q2

REPORT INFORMATION
  Report Type: 
  Country: None (occurrence: None)
  Receive Date: 20110420
  Receipt Date: 20110309
  Transmission Date: 20111010
  Serious: Yes (Other)
  Sender: FDA-Public Use
  Company Number: 1000012378

PATIENT
  Age: 49 Year
  Sex: Female

DRUGS (5)
  1. CITALOPRAM HYDROBROMIDE [Suspect]
     Indication: BIPOLAR DISORDER
     Dosage: 5 DROPS (5 GTT,L IN 1 D), ORAL
     Route: 048
     Dates: start: 19910101, end: 20100201
  2. FLUPENTIXOL (FLUPENTIXOL) (TABLETS) [Suspect]
     Indication: BIPOLAR DISORDER
     Dosage: 4 MG (1 MG, 4 IN 1 D), ORAL
     Route: 048
     Dates: start: 20100211, end: 20110228
  3. FLUPENTIXOL (FLUPENTIXOL)(TABLETS) [Suspect]
     Indication: BIPOLAR DISORDER
     Dosage: 2 MG (1 MG, 2 IN 1 D), ORAL
     Route: 048
     Dates: start: 20100205, end: 20100210
  4. PROMETHAZINE HCL [Suspect]
     Indication: INSOMNIA
     Dosage: ORAL
     Route: 048
     Dates: start: 19910101, end: 20100201
  5. HALOPERIDOL [Suspect]
     Indication: BIPOLAR DISORDER
     Dosage: ORAL
     Route: 048
     Dates: start: 19910101, end: 20100204

REACTIONS (4)
  - ELECTROCARDIOGRAM QT PROLONGED [None]
  - FEELING ABNORMAL [None]
  - CHEST PAIN [None]
  - SYNCOPE [None]
